FAERS Safety Report 11390121 (Version 1)
Quarter: 2015Q3

REPORT INFORMATION
  Report Type: Spontaneous
  Country: US (occurrence: US)
  Receive Date: 20150818
  Receipt Date: 20150818
  Transmission Date: 20151125
  Serious: Yes (Other)
  Sender: FDA-Public Use
  Company Number: US-ROCHE-1621570

PATIENT
  Sex: Female
  Weight: 76.27 kg

DRUGS (1)
  1. ESBRIET [Suspect]
     Active Substance: PIRFENIDONE
     Indication: IDIOPATHIC PULMONARY FIBROSIS
     Dosage: 2403MG DAILY
     Route: 048
     Dates: start: 20150528

REACTIONS (4)
  - Asthenia [Unknown]
  - Decreased appetite [Unknown]
  - Cough [Unknown]
  - Malaise [Unknown]
